FAERS Safety Report 26077589 (Version 2)
Quarter: 2025Q4

REPORT INFORMATION
  Report Type: Spontaneous
  Country: US (occurrence: US)
  Receive Date: 20251121
  Receipt Date: 20251230
  Transmission Date: 20260118
  Serious: No
  Sender: NOVARTIS
  Company Number: US-SANDOZ-SDZ2025US085968

PATIENT
  Sex: Female

DRUGS (1)
  1. TRAVATAN Z [Suspect]
     Active Substance: TRAVOPROST
     Indication: Glaucoma
     Dosage: UNK
     Route: 065

REACTIONS (3)
  - Product container issue [Unknown]
  - Suspected product tampering [Unknown]
  - Circumstance or information capable of leading to medication error [Unknown]
